FAERS Safety Report 10140677 (Version 2)
Quarter: 2015Q1

REPORT INFORMATION
  Report Type: Other
  Country: US (occurrence: US)
  Receive Date: 20140429
  Receipt Date: 20150227
  Transmission Date: 20150720
  Serious: Yes (Hospitalization, Other)
  Sender: FDA-Public Use
  Company Number: US-GSKPPD-2014GSK041409

PATIENT
  Age: 52 Year
  Sex: Female

DRUGS (5)
  1. AMIODARONE [Concomitant]
     Active Substance: AMIODARONE
     Dates: start: 200105
  2. ALTACE [Concomitant]
     Active Substance: RAMIPRIL
  3. AVANDIA [Suspect]
     Active Substance: ROSIGLITAZONE MALEATE
     Indication: DIABETES MELLITUS
     Dosage: DATES OF AVANDIA USE COULD NOT BE CONFIRMED IN RECORDS REVIEWED.
     Route: 048
  4. NEURONTIN [Concomitant]
     Active Substance: GABAPENTIN
  5. NITROSTAT [Concomitant]
     Active Substance: NITROGLYCERIN
     Dosage: UNIT DOSE: 1/150 GRAIN

REACTIONS (3)
  - Cardiac failure congestive [Unknown]
  - Cerebrovascular accident [Unknown]
  - Tachycardia [Recovered/Resolved]

NARRATIVE: CASE EVENT DATE: 20010521
